FAERS Safety Report 25792361 (Version 1)
Quarter: 2025Q3

REPORT INFORMATION
  Report Type: Report from Study
  Country: US (occurrence: US)
  Receive Date: 20250911
  Receipt Date: 20250911
  Transmission Date: 20251021
  Serious: Yes (Hospitalization)
  Sender: VERTEX
  Company Number: US-VERTEX PHARMACEUTICALS-2025-014873

PATIENT
  Age: 36 Year
  Sex: Male

DRUGS (15)
  1. ALYFTREK [Suspect]
     Active Substance: DEUTIVACAFTOR\TEZACAFTOR\VANZACAFTOR
     Indication: Cystic fibrosis
     Dosage: 2 TABLETS (10MG VANZACAFTOR/50MG TEZACAFTOR/125MG DEUTIVACAFTOR), QD
     Route: 048
     Dates: start: 20250711, end: 20250908
  2. ATENOLOL [Concomitant]
     Active Substance: ATENOLOL
  3. GABAPENTIN [Concomitant]
     Active Substance: GABAPENTIN
  4. MIRTAZAPINE [Concomitant]
     Active Substance: MIRTAZAPINE
  5. LEVETIRACETAM [Concomitant]
     Active Substance: LEVETIRACETAM
  6. CHLORDIAZEPOXIDE [Concomitant]
     Active Substance: CHLORDIAZEPOXIDE
  7. PANTOPRAZOLE [Concomitant]
     Active Substance: PANTOPRAZOLE
  8. FLUTICASONE [Concomitant]
     Active Substance: FLUTICASONE
  9. QUETIAPINE [Concomitant]
     Active Substance: QUETIAPINE
  10. SERTRALINE [Concomitant]
     Active Substance: SERTRALINE HYDROCHLORIDE
  11. HYDROXYZINE [Concomitant]
     Active Substance: HYDROXYZINE HYDROCHLORIDE
  12. NALTREXONE [Concomitant]
     Active Substance: NALTREXONE
  13. BUDESONIDE [Concomitant]
     Active Substance: BUDESONIDE
  14. CREON [Concomitant]
     Active Substance: PANCRELIPASE AMYLASE\PANCRELIPASE LIPASE\PANCRELIPASE PROTEASE
  15. TOBI PODHALER [Concomitant]
     Active Substance: TOBRAMYCIN

REACTIONS (2)
  - Infective pulmonary exacerbation of cystic fibrosis [Not Recovered/Not Resolved]
  - Anxiety [Not Recovered/Not Resolved]

NARRATIVE: CASE EVENT DATE: 20250808
